FAERS Safety Report 5700027-3 (Version None)
Quarter: 2008Q2

REPORT INFORMATION
  Report Type: 
  Country: None (occurrence: None)
  Receive Date: 20080410
  Receipt Date: 20080401
  Transmission Date: 20081010
  Serious: Yes (Other)
  Sender: FDA-Public Use
  Company Number: US-ASTRAZENECA-2008UW06512

PATIENT
  Age: 67 Year
  Sex: Female
  Weight: 80.7 kg

DRUGS (10)
  1. CRESTOR [Suspect]
     Route: 048
     Dates: start: 20070101
  2. SYNTHROID [Concomitant]
  3. ACTONEL [Concomitant]
  4. NEXIUM [Concomitant]
     Route: 048
  5. MULTI-VITAMIN [Concomitant]
  6. OSCAL D [Concomitant]
  7. CRANBERRY CAPSULE [Concomitant]
  8. NASONEX [Concomitant]
  9. EXCEDRIN (MIGRAINE) [Concomitant]
  10. CLARITIN [Concomitant]

REACTIONS (2)
  - GOITRE [None]
  - MUSCLE SPASMS [None]
